FAERS Safety Report 8107978-3 (Version None)
Quarter: 2012Q1

REPORT INFORMATION
  Report Type: 
  Country: None (occurrence: None)
  Receive Date: 20120202
  Receipt Date: 20120124
  Transmission Date: 20120608
  Serious: Yes (Hospitalization)
  Sender: FDA-Public Use
  Company Number: US-ACTELION-A-US2012-59818

PATIENT

DRUGS (2)
  1. TRACLEER [Suspect]
     Dosage: 62.5 MG, OD
     Route: 048
     Dates: start: 20110725, end: 20110808
  2. TRACLEER [Suspect]
     Indication: PULMONARY ARTERIAL HYPERTENSION
     Dosage: 62.5 MG, BID
     Route: 048
     Dates: start: 20110809, end: 20110901

REACTIONS (4)
  - CONFUSIONAL STATE [None]
  - HEADACHE [None]
  - FATIGUE [None]
  - HERPES ZOSTER [None]
